FAERS Safety Report 7472770-X (Version None)
Quarter: 2011Q1

REPORT INFORMATION
  Report Type: 
  Country: None (occurrence: None)
  Receive Date: 20110302
  Receipt Date: 20101209
  Transmission Date: 20110831
  Serious: Yes (Death)
  Sender: FDA-Public Use
  Company Number: 163-21880-10121159

PATIENT
  Age: 62 Year
  Sex: Female

DRUGS (1)
  1. REVLIMID [Suspect]
     Indication: MULTIPLE MYELOMA
     Dosage: 5 MG, DAILY X21 DAYS, PO
     Route: 048
     Dates: start: 20100930

REACTIONS (1)
  - DEATH [None]
